FAERS Safety Report 4401330-X (Version None)
Quarter: 2004Q3

REPORT INFORMATION
  Report Type: 
  Country: None (occurrence: None)
  Receive Date: 20040907
  Receipt Date: 20040312
  Transmission Date: 20050211
  Serious: No
  Sender: FDA-Public Use
  Company Number: US-BRISTOL-MYERS SQUIBB COMPANY-12531943

PATIENT
  Age: 74 Year
  Sex: Female
  Weight: 76 kg

DRUGS (4)
  1. COUMADIN [Suspect]
     Indication: THROMBOSIS PROPHYLAXIS
     Dosage: 2.5 MG QD X 5 DAYS + 5 MG QD X 2 DAYS.
     Route: 048
     Dates: start: 20040302
  2. CARDIZEM [Concomitant]
  3. PLAVIX [Concomitant]
  4. LANOXIN [Concomitant]

REACTIONS (2)
  - DYSPHAGIA [None]
  - ODYNOPHAGIA [None]
